FAERS Safety Report 5588922-X (Version None)
Quarter: 2007Q4

REPORT INFORMATION
  Report Type: 
  Country: None (occurrence: None)
  Receive Date: 20071212
  Receipt Date: 20070910
  Transmission Date: 20080405
  Serious: No
  Sender: FDA-Public Use
  Company Number: 2007RL000405

PATIENT
  Age: 60 Year
  Sex: Male
  Weight: 111.1313 kg

DRUGS (10)
  1. LOVAZA [Suspect]
     Indication: BLOOD TRIGLYCERIDES INCREASED
     Dosage: 2 GM;BID;PO
     Route: 048
     Dates: start: 20061103, end: 20070801
  2. DIAZIDE /00413701/ [Concomitant]
  3. LISINOPRIL [Concomitant]
  4. GLYBURIDE [Concomitant]
  5. ATENOLOL [Concomitant]
  6. CELEBREX [Concomitant]
  7. NEXIUM [Concomitant]
  8. LIPITOR [Concomitant]
  9. KEPPRA [Concomitant]
  10. ASPIRIN [Concomitant]

REACTIONS (1)
  - SKIN ODOUR ABNORMAL [None]
